FAERS Safety Report 6773169-1 (Version None)
Quarter: 2010Q2

REPORT INFORMATION
  Report Type: 
  Country: None (occurrence: None)
  Receive Date: 20100616
  Receipt Date: 20100401
  Transmission Date: 20101027
  Serious: No
  Sender: FDA-Public Use
  Company Number: US-ABBOTT-09P-163-0608003-00

PATIENT
  Sex: Male
  Weight: 101.7 kg

DRUGS (1)
  1. TRILIPIX [Suspect]
     Indication: BLOOD TRIGLYCERIDES INCREASED
     Dates: start: 20090708, end: 20090825

REACTIONS (1)
  - BLOOD CREATINE PHOSPHOKINASE INCREASED [None]
